FAERS Safety Report 9535018 (Version 2)
Quarter: 2013Q4

REPORT INFORMATION
  Report Type: Spontaneous
  Country: FR (occurrence: FR)
  Receive Date: 20130918
  Receipt Date: 20131015
  Transmission Date: 20140711
  Serious: Yes (Hospitalization)
  Sender: FDA-Public Use
  Company Number: FR-PFIZER INC-2013264690

PATIENT
  Age: 35 Year
  Sex: Male

DRUGS (11)
  1. LYRICA [Suspect]
     Indication: NEURALGIA
     Dosage: 25 MG, 2X/DAY
     Route: 048
     Dates: start: 20130815, end: 20130822
  2. BACTRIM [Suspect]
     Indication: PNEUMOCYSTIS JIROVECII PNEUMONIA
     Dosage: 2 G, 3X/DAY
     Route: 048
     Dates: start: 20130726, end: 20130814
  3. BACTRIM [Suspect]
     Indication: INFECTION PROPHYLAXIS
     Dosage: 800 MG, DAILY
     Route: 048
     Dates: start: 20130816, end: 20130822
  4. SEROPLEX [Suspect]
     Indication: DEPRESSIVE SYMPTOM
     Dosage: 5 MG, DAILY
     Route: 048
     Dates: start: 20130813, end: 20130821
  5. LOXAPAC [Suspect]
     Dosage: 25 MG, DAILY
     Route: 048
     Dates: start: 20130810, end: 20130822
  6. TRUVADA [Concomitant]
     Indication: HIV INFECTION
     Dosage: UNK
     Dates: start: 20130812
  7. PREZISTA [Concomitant]
     Indication: HIV INFECTION
     Dosage: UNK
     Dates: start: 20130812
  8. NORVIR [Concomitant]
     Indication: HIV INFECTION
     Dosage: UNK
     Dates: start: 20130812
  9. ROVALCYTE [Concomitant]
  10. XANAX [Concomitant]
  11. PARACETAMOL [Concomitant]

REACTIONS (2)
  - Rash generalised [Recovered/Resolved]
  - Pyrexia [Recovered/Resolved]
